FAERS Safety Report 19673349 (Version 1)
Quarter: 2021Q3

REPORT INFORMATION
  Report Type: Spontaneous
  Country: IT (occurrence: IT)
  Receive Date: 20210809
  Receipt Date: 20210809
  Transmission Date: 20211014
  Serious: Yes (Other)
  Sender: FDA-Public Use
  Company Number: IT-AUROBINDO-AUR-APL-2021-033348

PATIENT
  Age: 78 Year
  Sex: Male
  Weight: 81 kg

DRUGS (1)
  1. BISOPROLOL FILM?COATED TABLETS [Suspect]
     Active Substance: BISOPROLOL
     Indication: MYOCARDIAL ISCHAEMIA
     Dosage: 1.25 MILLIGRAM, ONCE A DAY
     Route: 048
     Dates: start: 20210410, end: 20210525

REACTIONS (1)
  - Erectile dysfunction [Recovered/Resolved]

NARRATIVE: CASE EVENT DATE: 20210520
